FAERS Safety Report 5279582-6 (Version None)
Quarter: 2007Q1

REPORT INFORMATION
  Report Type: 
  Country: None (occurrence: None)
  Receive Date: 20070328
  Receipt Date: 20070319
  Transmission Date: 20070707
  Serious: Yes (Other)
  Sender: FDA-Public Use
  Company Number: US-PFIZER INC-2007022784

PATIENT
  Sex: Male
  Weight: 70.3 kg

DRUGS (1)
  1. DETROL LA [Suspect]
     Indication: MICTURITION URGENCY
     Dates: start: 20061001, end: 20070225

REACTIONS (5)
  - DRY EYE [None]
  - DRY MOUTH [None]
  - EYE PRURITUS [None]
  - PAROTID GLAND ENLARGEMENT [None]
  - SUBMAXILLARY GLAND ENLARGEMENT [None]
